FAERS Safety Report 13009142 (Version 8)
Quarter: 2019Q4

REPORT INFORMATION
  Report Type: Spontaneous
  Country: JP (occurrence: JP)
  Receive Date: 20161208
  Receipt Date: 20191014
  Transmission Date: 20200122
  Serious: Yes (Hospitalization, Other)
  Sender: FDA-Public Use
  Company Number: JP-JNJFOC-20161206833

PATIENT
  Age: 81 Year
  Sex: Male
  Weight: 61 kg

DRUGS (25)
  1. TRAZENTA [Suspect]
     Active Substance: LINAGLIPTIN
     Indication: TYPE 2 DIABETES MELLITUS
     Route: 048
     Dates: start: 20160527, end: 20170629
  2. AMLODIN [Suspect]
     Active Substance: AMLODIPINE BESYLATE
     Route: 048
     Dates: start: 20180608, end: 20180705
  3. AZILVA [Concomitant]
     Active Substance: AZILSARTAN KAMEDOXOMIL
     Route: 048
     Dates: start: 20190125
  4. CASODEX [Concomitant]
     Active Substance: BICALUTAMIDE
     Route: 048
     Dates: start: 20160901
  5. LEUPLIN [Concomitant]
     Active Substance: LEUPROLIDE ACETATE
     Route: 051
     Dates: start: 20160915
  6. CODEINE PHOSPHATE [Concomitant]
     Active Substance: CODEINE PHOSPHATE
     Route: 048
  7. VOLTAREN [Concomitant]
     Active Substance: DICLOFENAC SODIUM
     Route: 048
  8. PRIMPERAN [Concomitant]
     Active Substance: METOCLOPRAMIDE HYDROCHLORIDE
     Route: 048
  9. ZITHROMAC [Concomitant]
     Active Substance: AZITHROMYCIN DIHYDRATE
     Route: 048
  10. CANAGLIFLOZIN [Suspect]
     Active Substance: CANAGLIFLOZIN
     Indication: TYPE 2 DIABETES MELLITUS
     Route: 048
     Dates: start: 20160805
  11. AZOSEMIDE [Suspect]
     Active Substance: AZOSEMIDE
     Route: 048
     Dates: start: 20160714, end: 20171207
  12. AMLODIN [Suspect]
     Active Substance: AMLODIPINE BESYLATE
     Indication: PRODUCT USED FOR UNKNOWN INDICATION
     Route: 048
     Dates: start: 20150527, end: 20180608
  13. FEBURIC [Concomitant]
     Active Substance: FEBUXOSTAT
     Route: 048
     Dates: start: 20150527
  14. PRAZAXA [Concomitant]
     Active Substance: DABIGATRAN ETEXILATE MESYLATE
     Route: 048
     Dates: start: 20150527, end: 20170713
  15. MUCOSTA [Concomitant]
     Active Substance: REBAMIPIDE
     Route: 048
  16. MUCOSOLVAN [Concomitant]
     Active Substance: AMBROXOL HYDROCHLORIDE
     Route: 048
  17. FLUITRAN [Suspect]
     Active Substance: TRICHLORMETHIAZIDE
     Indication: PRODUCT USED FOR UNKNOWN INDICATION
     Route: 048
     Dates: start: 20170804, end: 20170831
  18. PRAZAXA [Concomitant]
     Active Substance: DABIGATRAN ETEXILATE MESYLATE
     Route: 048
     Dates: start: 20170714, end: 20170817
  19. AZOSEMIDE [Suspect]
     Active Substance: AZOSEMIDE
     Route: 048
     Dates: start: 20171208, end: 20180802
  20. AZOSEMIDE [Suspect]
     Active Substance: AZOSEMIDE
     Route: 048
     Dates: start: 20180803
  21. WARFARIN [Concomitant]
     Active Substance: WARFARIN
     Route: 048
     Dates: start: 20170818
  22. PERIACTIN [Concomitant]
     Active Substance: CYPROHEPTADINE HYDROCHLORIDE
     Route: 048
  23. AZOSEMIDE [Suspect]
     Active Substance: AZOSEMIDE
     Indication: PRODUCT USED FOR UNKNOWN INDICATION
     Route: 048
     Dates: start: 20160527, end: 20170713
  24. FLUITRAN [Suspect]
     Active Substance: TRICHLORMETHIAZIDE
     Route: 048
     Dates: start: 20170901, end: 20180705
  25. AZILVA [Concomitant]
     Active Substance: AZILSARTAN KAMEDOXOMIL
     Indication: HYPERTENSION
     Route: 048
     Dates: start: 20150527, end: 20190124

REACTIONS (13)
  - Renal impairment [Recovering/Resolving]
  - Feeling cold [Recovered/Resolved]
  - Blood pressure diastolic decreased [Recovering/Resolving]
  - Cardiac failure [Recovered/Resolved]
  - Melaena [Recovered/Resolved]
  - Pollakiuria [Recovering/Resolving]
  - Hyperhidrosis [Recovered/Resolved]
  - Heart rate increased [Recovering/Resolving]
  - Oedema peripheral [Recovered/Resolved]
  - Weight decreased [Recovering/Resolving]
  - Ileus [Recovered/Resolved]
  - Cold sweat [Recovered/Resolved]
  - Blood pressure increased [Recovered/Resolved]

NARRATIVE: CASE EVENT DATE: 2016
